FAERS Safety Report 7966893-6 (Version None)
Quarter: 2011Q4

REPORT INFORMATION
  Report Type: 
  Country: None (occurrence: None)
  Receive Date: 20111209
  Receipt Date: 20111206
  Transmission Date: 20120403
  Serious: No
  Sender: FDA-Public Use
  Company Number: US-PFIZER INC-2011275423

PATIENT
  Sex: Female

DRUGS (5)
  1. LYRICA [Suspect]
     Indication: NEURALGIA
     Dosage: 75 MG, 3X/DAY
     Dates: start: 20111019, end: 20110101
  2. ZANAFLEX [Concomitant]
     Dosage: 8 MG, 1X/DAY HS
  3. LYRICA [Suspect]
     Dosage: 150 MG, 3X/DAY
     Dates: start: 20110101
  4. NORTRIPTYLINE [Concomitant]
     Dosage: 50 MG, 1X/DAY HS
  5. BETASERON [Concomitant]
     Dosage: UNK
     Dates: end: 20111115

REACTIONS (1)
  - CENTRAL OBESITY [None]
